FAERS Safety Report 24941839 (Version 1)
Quarter: 2025Q1

REPORT INFORMATION
  Report Type: Spontaneous
  Country: GB (occurrence: GB)
  Receive Date: 20250207
  Receipt Date: 20250207
  Transmission Date: 20250409
  Serious: Yes (Other)
  Sender: ASTELLAS
  Company Number: GB-MHRA-TPP58215307C11157291YC1738752287679

PATIENT
  Age: 76 Year
  Sex: Male
  Weight: 86 kg

DRUGS (5)
  1. ENZALUTAMIDE [Suspect]
     Active Substance: ENZALUTAMIDE
     Indication: Product used for unknown indication
     Route: 065
     Dates: start: 20241203
  2. DECAPEPTYL [Concomitant]
     Indication: Product used for unknown indication
     Dosage: IM INJECTION EVERY 3 MONTHS
     Route: 030
     Dates: start: 20241205
  3. BIMATOPROST [Concomitant]
     Active Substance: BIMATOPROST
     Indication: Product used for unknown indication
     Dosage: ONE DROP TO BE USED AT NIGHT IN THE AFFECTED EY...
     Route: 065
     Dates: start: 20230511
  4. AMLODIPINE [Concomitant]
     Active Substance: AMLODIPINE BESYLATE
     Indication: Product used for unknown indication
     Dosage: TAKE ONE DAILY
     Route: 065
     Dates: start: 20241114, end: 20241118
  5. DOXAZOSIN [Concomitant]
     Active Substance: DOXAZOSIN MESYLATE
     Indication: Product used for unknown indication
     Dosage: TAKE ONE DAILY
     Route: 065
     Dates: start: 20241216

REACTIONS (4)
  - Swollen tongue [Recovered/Resolved]
  - Oral mucosal blistering [Recovered/Resolved]
  - Lip exfoliation [Recovered/Resolved]
  - Lip swelling [Unknown]

NARRATIVE: CASE EVENT DATE: 20241210
